FAERS Safety Report 18046106 (Version 7)
Quarter: 2021Q3

REPORT INFORMATION
  Report Type: Report from Study
  Country: US (occurrence: US)
  Receive Date: 20200720
  Receipt Date: 20210706
  Transmission Date: 20211014
  Serious: No
  Sender: FDA-Public Use
  Company Number: NVSC2020US201837

PATIENT
  Sex: Female

DRUGS (3)
  1. PIQRAY [Suspect]
     Active Substance: ALPELISIB
     Route: 048
  2. KISQALI [Suspect]
     Active Substance: RIBOCICLIB
     Indication: PRODUCT USED FOR UNKNOWN INDICATION
     Route: 048
  3. PIQRAY [Suspect]
     Active Substance: ALPELISIB
     Indication: PRODUCT USED FOR UNKNOWN INDICATION
     Dosage: UNK
     Route: 048

REACTIONS (17)
  - Asthenia [Unknown]
  - Vomiting [Unknown]
  - Erythema [Unknown]
  - Diarrhoea [Unknown]
  - White blood cell count decreased [Recovered/Resolved with Sequelae]
  - Drug ineffective [Unknown]
  - Stomatitis [Unknown]
  - Blister [Unknown]
  - Drug intolerance [Recovered/Resolved with Sequelae]
  - Eating disorder [Unknown]
  - Decreased appetite [Unknown]
  - Nausea [Unknown]
  - Peripheral coldness [Unknown]
  - Blood pressure increased [Unknown]
  - Dry mouth [Unknown]
  - Product dose omission issue [Unknown]
  - Constipation [Unknown]
